FAERS Safety Report 9266656 (Version 1)
Quarter: 2013Q2

REPORT INFORMATION
  Report Type: Spontaneous
  Country: US (occurrence: US)
  Receive Date: 20130502
  Receipt Date: 20130502
  Transmission Date: 20140414
  Serious: Yes (Death)
  Sender: FDA-Public Use
  Company Number: US-ASTELLAS-2013US004590

PATIENT
  Age: 92 Year
  Sex: Male

DRUGS (1)
  1. XTANDI [Suspect]
     Indication: PROSTATE CANCER
     Dosage: 80 MG, UID/QD
     Route: 048
     Dates: start: 20121029, end: 20130325

REACTIONS (2)
  - Incorrect dose administered [Unknown]
  - Myocardial infarction [Fatal]
